FAERS Safety Report 4999657-6 (Version None)
Quarter: 2006Q2

REPORT INFORMATION
  Report Type: 
  Country: None (occurrence: None)
  Receive Date: 20060511
  Receipt Date: 20060428
  Transmission Date: 20061013
  Serious: Yes (Other)
  Sender: FDA-Public Use
  Company Number: PHHO2006GB07373

PATIENT
  Age: 56 Year
  Sex: Male

DRUGS (5)
  1. ZOLEDRONATE [Suspect]
     Indication: MULTIPLE MYELOMA
     Dosage: 4 MG, EVERY 3-4 WEEKS
     Route: 042
  2. CYCLOPHOSPHAMIDE [Suspect]
  3. VINCRISTINE [Suspect]
  4. ADRIAMYCIN PFS [Suspect]
  5. DEXAMETHASONE [Suspect]

REACTIONS (1)
  - GINGIVAL EROSION [None]
